FAERS Safety Report 16557620 (Version 2)
Quarter: 2020Q2

REPORT INFORMATION
  Report Type: Spontaneous
  Country: GB (occurrence: GB)
  Receive Date: 20190711
  Receipt Date: 20200513
  Transmission Date: 20200713
  Serious: Yes (Other)
  Sender: FDA-Public Use
  Company Number: PHHY2019GB158231

PATIENT
  Sex: Female

DRUGS (4)
  1. METHOTREXATE. [Suspect]
     Active Substance: METHOTREXATE
     Dosage: 20 MG, QW
     Route: 065
     Dates: end: 20190625
  2. METHOTREXATE. [Suspect]
     Active Substance: METHOTREXATE
     Indication: PRODUCT USED FOR UNKNOWN INDICATION
     Dosage: UNK
     Route: 065
  3. PREDNISOLONE. [Concomitant]
     Active Substance: PREDNISOLONE
     Indication: PRODUCT USED FOR UNKNOWN INDICATION
     Dosage: 4X5MG TABLETS DAILY FOR 2 WEEKS, 3X5MG, 2X5MG,1X5MG DAILY FOR 2 WEEKS
     Route: 065
     Dates: end: 20190606
  4. METHOTREXATE. [Suspect]
     Active Substance: METHOTREXATE
     Dosage: 15 MG (X2 WEEKS)
     Route: 065
     Dates: start: 20190501

REACTIONS (7)
  - Nausea [Unknown]
  - Pain in extremity [Unknown]
  - Diarrhoea [Unknown]
  - Peripheral swelling [Unknown]
  - Dyspepsia [Unknown]
  - Joint swelling [Unknown]
  - Arthritis [Unknown]
